FAERS Safety Report 4280252-1 (Version None)
Quarter: 2004Q1

REPORT INFORMATION
  Report Type: 
  Country: None (occurrence: None)
  Receive Date: 20040126
  Receipt Date: 20040113
  Transmission Date: 20041129
  Serious: Yes (Other)
  Sender: FDA-Public Use
  Company Number: 2004002431

PATIENT
  Sex: 0

DRUGS (1)
  1. CEREBYX [Suspect]
     Indication: ILL-DEFINED DISORDER

REACTIONS (2)
  - HEPATIC FAILURE [None]
  - RENAL FAILURE [None]
